FAERS Safety Report 20027263 (Version 1)
Quarter: 2021Q4

REPORT INFORMATION
  Report Type: Spontaneous
  Country: US (occurrence: US)
  Receive Date: 20211103
  Receipt Date: 20211103
  Transmission Date: 20220303
  Serious: Yes (Other)
  Sender: FDA-Public Use
  Company Number: US-Apnar-000113

PATIENT
  Age: 68 Year
  Sex: Male
  Weight: 117.93 kg

DRUGS (11)
  1. TERAZOSIN HYDROCHLORIDE [Interacting]
     Active Substance: TERAZOSIN HYDROCHLORIDE
     Indication: Benign prostatic hyperplasia
  2. KORLYM [Interacting]
     Active Substance: MIFEPRISTONE
     Indication: Cushing^s syndrome
     Dosage: STRENGTH : 150MG
     Route: 048
     Dates: start: 20211005, end: 20211007
  3. CYANOCOBALAMIN [Concomitant]
     Active Substance: CYANOCOBALAMIN
  4. FINASTERIDE [Concomitant]
     Active Substance: FINASTERIDE
  5. HYDROCHLOROTHIAZIDE [Concomitant]
     Active Substance: HYDROCHLOROTHIAZIDE
  6. METOPROLOL [Concomitant]
     Active Substance: METOPROLOL
  7. NOVOLIN 10R [Concomitant]
  8. OXYCODONE HYDROCHLORIDE [Concomitant]
     Active Substance: OXYCODONE HYDROCHLORIDE
  9. PRAVASTATIN [Concomitant]
     Active Substance: PRAVASTATIN
  10. TELMISARTAN [Concomitant]
     Active Substance: TELMISARTAN
  11. VITAMIN D [Concomitant]
     Active Substance: VITAMIN D NOS

REACTIONS (3)
  - Urinary retention [Not Recovered/Not Resolved]
  - Drug interaction [Recovered/Resolved]
  - Hypoglycaemia [Recovered/Resolved]

NARRATIVE: CASE EVENT DATE: 20210101
